FAERS Safety Report 12950434 (Version 4)
Quarter: 2017Q1

REPORT INFORMATION
  Report Type: Report from Study
  Country: JP (occurrence: JP)
  Receive Date: 20161117
  Receipt Date: 20170110
  Transmission Date: 20170428
  Serious: Yes (Hospitalization)
  Sender: FDA-Public Use
  Company Number: JP-PFIZER INC-2016529328

PATIENT
  Age: 73 Year
  Sex: Female
  Weight: 45.7 kg

DRUGS (23)
  1. PRIMPERAN [Concomitant]
     Active Substance: METOCLOPRAMIDE HYDROCHLORIDE
     Dosage: UNK
     Route: 048
     Dates: start: 20160930
  2. LOPERAMIDE [Concomitant]
     Active Substance: LOPERAMIDE
     Dosage: DRUG UNSPECIFIED FORM
     Route: 048
     Dates: start: 20160804
  3. DIQUAS [Concomitant]
     Active Substance: DIQUAFOSOL TETRASODIUM
     Dosage: UNK
     Route: 047
     Dates: start: 2014
  4. DOXORUBICIN HCL [Suspect]
     Active Substance: DOXORUBICIN HYDROCHLORIDE
     Dosage: 70.4 MG/ BODY (75% OF 75 MG/M2)
     Dates: start: 20161018, end: 20161126
  5. BLINDED THERAPY [Suspect]
     Active Substance: INVESTIGATIONAL PRODUCT
     Indication: SOFT TISSUE SARCOMA
     Dosage: CYCLIC (ON DAYS 1 AND 8, IN 21-DAY CYCLE)
     Route: 042
     Dates: start: 20160726, end: 20160726
  6. ATORVASTATIN [Concomitant]
     Active Substance: ATORVASTATIN
     Dosage: DRUG UNSPECIFIED FORM
     Route: 048
     Dates: start: 2011
  7. POLARAMINE [Concomitant]
     Active Substance: DEXCHLORPHENIRAMINE MALEATE
     Dosage: UNK
     Route: 042
     Dates: start: 20160726, end: 20161018
  8. DEXART [Concomitant]
     Active Substance: DEXAMETHASONE SODIUM PHOSPHATE
     Dosage: UNK
     Route: 042
     Dates: start: 20160726, end: 20161018
  9. MAZULENIN /00317303/ [Concomitant]
     Dosage: GARGLE
     Dates: start: 20160803
  10. DOXORUBICIN HCL [Suspect]
     Active Substance: DOXORUBICIN HYDROCHLORIDE
     Indication: SOFT TISSUE SARCOMA
     Dosage: 75 MG/M2, CYCLIC (DAY 1 IN 21-DAY CYCLE)
     Route: 042
     Dates: start: 20160726
  11. BLINDED THERAPY [Suspect]
     Active Substance: INVESTIGATIONAL PRODUCT
     Dosage: UNK
     Route: 042
     Dates: start: 20160809, end: 20161018
  12. TAKECAB [Concomitant]
     Active Substance: VONOPRAZAN FUMURATE
     Dosage: UNK
     Route: 048
     Dates: start: 20160816
  13. MECOBALAMIN [Concomitant]
     Active Substance: METHYLCOBALAMIN
     Dosage: UNK
     Route: 048
     Dates: start: 2011
  14. LIMAPROST ALFADEX [Concomitant]
     Active Substance: LIMAPROST
     Dosage: DRUG UNSPECIFIED FORM
     Route: 048
     Dates: start: 2011
  15. RIVOTRIL [Concomitant]
     Active Substance: CLONAZEPAM
     Dosage: DRUG UNSPECIFIED FORM
     Route: 048
     Dates: start: 2011
  16. HYALEIN [Concomitant]
     Active Substance: HYALURONATE SODIUM
     Dosage: UNK
     Route: 047
     Dates: start: 2014
  17. XYLOCAINE [Concomitant]
     Active Substance: LIDOCAINE HYDROCHLORIDE
     Dosage: SOLUTION
     Dates: start: 20160803
  18. XYLOCAINE [Concomitant]
     Active Substance: LIDOCAINE HYDROCHLORIDE
     Dosage: UNK
     Dates: start: 20160803
  19. EDIROL [Concomitant]
     Active Substance: ELDECALCITOL
     Dosage: DRUG UNSPECIFIED FORM
     Route: 048
     Dates: start: 2015
  20. BLINDED THERAPY [Suspect]
     Active Substance: INVESTIGATIONAL PRODUCT
     Dosage: UNK
     Dates: start: 20161018, end: 20161026
  21. DEXRAZOXANE. [Suspect]
     Active Substance: DEXRAZOXANE
     Dosage: 704 MG/ BODY
     Route: 042
     Dates: start: 20161018, end: 20161126
  22. MAGNESIUM [Concomitant]
     Active Substance: MAGNESIUM
     Dosage: UNK
     Route: 048
     Dates: start: 20160820
  23. RANITIDINE. [Concomitant]
     Active Substance: RANITIDINE
     Dosage: UNK
     Route: 042
     Dates: start: 20160726, end: 20161018

REACTIONS (1)
  - Pneumonitis [Recovered/Resolved]

NARRATIVE: CASE EVENT DATE: 20161101
